FAERS Safety Report 7804227-8 (Version None)
Quarter: 2011Q4

REPORT INFORMATION
  Report Type: 
  Country: None (occurrence: None)
  Receive Date: 20111010
  Receipt Date: 20110926
  Transmission Date: 20120403
  Serious: Yes (Other)
  Sender: FDA-Public Use
  Company Number: PHHY2011DE85808

PATIENT
  Age: 87 Year
  Sex: Female

DRUGS (2)
  1. BISOPROLOL [Concomitant]
     Dosage: 1.25 MG + 0 + 2.5 MG
     Route: 048
     Dates: start: 20100101
  2. DIOVAN [Suspect]
     Indication: HYPERTENSION
     Dosage: 1 DF, QD
     Route: 048
     Dates: start: 20100101

REACTIONS (3)
  - HYPERTENSIVE CRISIS [None]
  - TACHYCARDIA [None]
  - HYPOTENSION [None]
